FAERS Safety Report 4441155-2 (Version None)
Quarter: 2004Q3

REPORT INFORMATION
  Report Type: 
  Country: None (occurrence: None)
  Receive Date: 20040728
  Receipt Date: 20040518
  Transmission Date: 20050211
  Serious: No
  Sender: FDA-Public Use
  Company Number: USA040567857

PATIENT
  Sex: Male

DRUGS (2)
  1. STRATTERA [Suspect]
     Indication: ATTENTION DEFICIT/HYPERACTIVITY DISORDER
  2. MULTIVITAMIN [Concomitant]

REACTIONS (5)
  - DRUG INEFFECTIVE [None]
  - FORMICATION [None]
  - MOOD SWINGS [None]
  - NERVOUSNESS [None]
  - PRURITUS [None]
